FAERS Safety Report 12646232 (Version 2)
Quarter: 2016Q3

REPORT INFORMATION
  Report Type: Report from Study
  Country: GB (occurrence: GB)
  Receive Date: 20160811
  Receipt Date: 20160830
  Transmission Date: 20161109
  Serious: Yes (Other)
  Sender: FDA-Public Use
  Company Number: GB-BRISTOL-MYERS SQUIBB COMPANY-BMS-2016-051402

PATIENT
  Sex: Female

DRUGS (1)
  1. ABATACEPT [Suspect]
     Active Substance: ABATACEPT
     Indication: RHEUMATOID ARTHRITIS
     Dosage: 125 MG, QWK
     Route: 058
     Dates: start: 20151118

REACTIONS (7)
  - Musculoskeletal stiffness [Unknown]
  - Epistaxis [Unknown]
  - Joint stiffness [Unknown]
  - Insomnia [Unknown]
  - Abasia [Unknown]
  - Arthralgia [Unknown]
  - Pain in extremity [Unknown]
